FAERS Safety Report 4885780-3 (Version None)
Quarter: 2006Q1

REPORT INFORMATION
  Report Type: 
  Country: None (occurrence: None)
  Receive Date: 20060117
  Receipt Date: 20060103
  Transmission Date: 20060701
  Serious: Yes (Other)
  Sender: FDA-Public Use
  Company Number: 2006003894

PATIENT
  Age: 54 Year
  Sex: Male

DRUGS (1)
  1. SOMATROPIN (SOMATROPIN) [Suspect]
     Indication: GROWTH HORMONE DEFICIENCY

REACTIONS (5)
  - CONDITION AGGRAVATED [None]
  - GERM CELL CANCER [None]
  - GROWTH HORMONE DEFICIENCY [None]
  - NEOPLASM PROGRESSION [None]
  - NEOPLASM RECURRENCE [None]
